FAERS Safety Report 4643659-6 (Version None)
Quarter: 2005Q2

REPORT INFORMATION
  Report Type: 
  Country: None (occurrence: None)
  Receive Date: 20050425
  Receipt Date: 20050412
  Transmission Date: 20051028
  Serious: Yes (Other)
  Sender: FDA-Public Use
  Company Number: BR-JNJFOC-20050404182

PATIENT
  Age: 22 Year
  Sex: Male

DRUGS (5)
  1. TYLENOL (CAPLET) [Suspect]
  2. TYLENOL (CAPLET) [Suspect]
     Indication: SUICIDE ATTEMPT
     Dosage: 11 TABLETS
  3. CARBAMAZEPINE [Suspect]
     Indication: SUICIDE ATTEMPT
     Dosage: 30 TABLETS
  4. CRACK [Suspect]
     Indication: SUICIDE ATTEMPT
  5. ALCOHOL [Suspect]
     Indication: SUICIDE ATTEMPT

REACTIONS (2)
  - AGITATION [None]
  - INTENTIONAL MISUSE [None]
